FAERS Safety Report 11105287 (Version 1)
Quarter: 2015Q2

REPORT INFORMATION
  Report Type: Other
  Country: GB (occurrence: GB)
  Receive Date: 20150512
  Receipt Date: 20150512
  Transmission Date: 20150821
  Serious: Yes (Hospitalization, Other)
  Sender: FDA-Public Use
  Company Number: GB-MYLANLABS-2015M1014482

PATIENT

DRUGS (2)
  1. FLUOXETINE [Concomitant]
     Active Substance: FLUOXETINE\FLUOXETINE HYDROCHLORIDE
     Indication: ANXIETY
     Dosage: 4 MG, UNK
     Dates: start: 201312
  2. RISPERIDONE. [Suspect]
     Active Substance: RISPERIDONE
     Indication: ANXIETY
     Dosage: 0.75 MG, UNK (0.75MG TOTAL DOSE (0.25MG EVERY MORNING, 0.5MG AT NIGHT))
     Route: 048
     Dates: start: 20140617, end: 20150223

REACTIONS (8)
  - Blood cortisol increased [Unknown]
  - Gait disturbance [Unknown]
  - Hypothermia [Recovered/Resolved with Sequelae]
  - Communication disorder [Unknown]
  - Liver function test abnormal [Unknown]
  - Malaise [Unknown]
  - Syncope [Unknown]
  - Blood sodium increased [Unknown]

NARRATIVE: CASE EVENT DATE: 20141215
